FAERS Safety Report 4388941-5 (Version None)
Quarter: 2004Q3

REPORT INFORMATION
  Report Type: 
  Country: None (occurrence: None)
  Receive Date: 20040702
  Receipt Date: 20030514
  Transmission Date: 20050211
  Serious: Yes (Other)
  Sender: FDA-Public Use
  Company Number: GB-BRISTOL-MYERS SQUIBB COMPANY-12276077

PATIENT
  Age: 54 Year
  Sex: Male

DRUGS (7)
  1. ATAZANAVIR [Suspect]
     Indication: HIV INFECTION
     Route: 048
     Dates: start: 20030410
  2. DIDANOSINE [Concomitant]
     Dates: start: 19990105
  3. LAMIVUDINE [Concomitant]
     Dates: start: 19990105
  4. ABACAVIR [Concomitant]
     Dates: start: 19990105
  5. FLUCONAZOLE [Concomitant]
     Dates: start: 19941212
  6. MULTI-VITAMINS [Concomitant]
     Dates: start: 19941212
  7. ATORVASTATIN CALCIUM [Concomitant]
     Dates: start: 20020503

REACTIONS (1)
  - PROTEINURIA [None]
